FAERS Safety Report 24948986 (Version 1)
Quarter: 2025Q1

REPORT INFORMATION
  Report Type: Spontaneous
  Country: US (occurrence: US)
  Receive Date: 20250210
  Receipt Date: 20250210
  Transmission Date: 20250409
  Serious: Yes (Other)
  Sender: AMGEN
  Company Number: US-AMGEN-USASP2025024192

PATIENT

DRUGS (2)
  1. BEVACIZUMAB [Suspect]
     Active Substance: BEVACIZUMAB
     Indication: Hepatocellular carcinoma
     Dosage: 15 MILLIGRAM/KILOGRAM, Q3WK
     Route: 065
  2. ATEZOLIZUMAB [Suspect]
     Active Substance: ATEZOLIZUMAB
     Indication: Hepatocellular carcinoma
     Dosage: 1200 MILLIGRAM, Q3WK
     Route: 065

REACTIONS (14)
  - Hyperthyroidism [Unknown]
  - Immune-mediated oesophagitis [Unknown]
  - Adverse event [Unknown]
  - Thrombocytopenia [Unknown]
  - Liver transplant rejection [Recovered/Resolved]
  - Liver transplant failure [Unknown]
  - Alanine aminotransferase increased [Unknown]
  - Drug effective for unapproved indication [Unknown]
  - Aspartate aminotransferase increased [Unknown]
  - Therapy partial responder [Unknown]
  - Hypertension [Unknown]
  - Asthenia [Unknown]
  - Post procedural complication [Unknown]
  - Off label use [Unknown]
